FAERS Safety Report 26118257 (Version 1)
Quarter: 2025Q4

REPORT INFORMATION
  Report Type: Spontaneous
  Country: KR (occurrence: KR)
  Receive Date: 20251203
  Receipt Date: 20251203
  Transmission Date: 20260119
  Serious: Yes (Hospitalization)
  Sender: NOVARTIS
  Company Number: KR-002147023-NVSC2025KR099284

PATIENT
  Age: 75 Year
  Sex: Male

DRUGS (18)
  1. BEOVU [Suspect]
     Active Substance: BROLUCIZUMAB-DBLL
     Indication: Neovascular age-related macular degeneration
     Dosage: 6 MG (0.05 ML)
     Route: 031
     Dates: start: 20240531
  2. BEOVU [Suspect]
     Active Substance: BROLUCIZUMAB-DBLL
     Dosage: 6 MG, 2 MONTHS
     Route: 065
  3. PHENYLEPHRINE HYDROCHLORIDE\TROPICAMIDE [Concomitant]
     Active Substance: PHENYLEPHRINE HYDROCHLORIDE\TROPICAMIDE
     Indication: Mydriasis
     Dosage: 1 DRP
     Route: 065
     Dates: start: 20240531
  4. PHENYLEPHRINE HYDROCHLORIDE\TROPICAMIDE [Concomitant]
     Active Substance: PHENYLEPHRINE HYDROCHLORIDE\TROPICAMIDE
     Dosage: 1 DRP
     Route: 065
     Dates: start: 20240628
  5. PHENYLEPHRINE HYDROCHLORIDE\TROPICAMIDE [Concomitant]
     Active Substance: PHENYLEPHRINE HYDROCHLORIDE\TROPICAMIDE
     Dosage: 1 DRP
     Route: 065
     Dates: start: 20240729
  6. PHENYLEPHRINE HYDROCHLORIDE\TROPICAMIDE [Concomitant]
     Active Substance: PHENYLEPHRINE HYDROCHLORIDE\TROPICAMIDE
     Dosage: 1 DRP
     Route: 065
     Dates: start: 20240923
  7. PHENYLEPHRINE HYDROCHLORIDE\TROPICAMIDE [Concomitant]
     Active Substance: PHENYLEPHRINE HYDROCHLORIDE\TROPICAMIDE
     Dosage: 1 DRP
     Route: 065
     Dates: start: 20241118
  8. PHENYLEPHRINE HYDROCHLORIDE\TROPICAMIDE [Concomitant]
     Active Substance: PHENYLEPHRINE HYDROCHLORIDE\TROPICAMIDE
     Dosage: 1 DRP
     Route: 065
     Dates: start: 20250113
  9. PHENYLEPHRINE HYDROCHLORIDE\TROPICAMIDE [Concomitant]
     Active Substance: PHENYLEPHRINE HYDROCHLORIDE\TROPICAMIDE
     Dosage: 1 DRP,  2 MONTHS
     Route: 065
  10. PARACAINE [Concomitant]
     Active Substance: PROPARACAINE HYDROCHLORIDE
     Indication: Anaesthesia eye
     Dosage: 1 DRP
     Route: 065
     Dates: start: 20240531
  11. PARACAINE [Concomitant]
     Active Substance: PROPARACAINE HYDROCHLORIDE
     Dosage: 1 DRP
     Route: 065
     Dates: start: 20240729
  12. PARACAINE [Concomitant]
     Active Substance: PROPARACAINE HYDROCHLORIDE
     Dosage: 1 DRP
     Route: 065
     Dates: start: 20240923
  13. PARACAINE [Concomitant]
     Active Substance: PROPARACAINE HYDROCHLORIDE
     Dosage: 1 DRP
     Route: 065
     Dates: start: 20241118
  14. PARACAINE [Concomitant]
     Active Substance: PROPARACAINE HYDROCHLORIDE
     Dosage: 1 DRP
     Route: 065
     Dates: start: 20250113
  15. PARACAINE [Concomitant]
     Active Substance: PROPARACAINE HYDROCHLORIDE
     Dosage: 1 DRP
     Route: 065
  16. PARACAINE [Concomitant]
     Active Substance: PROPARACAINE HYDROCHLORIDE
     Dosage: 1 DRP 2 MONTHS
     Route: 065
  17. ADALAT [Concomitant]
     Active Substance: NIFEDIPINE
     Indication: Hypertension
     Dosage: 1 DOSAGE FORM
     Route: 065
     Dates: start: 20230119
  18. ADALAT [Concomitant]
     Active Substance: NIFEDIPINE
     Dosage: 1 DOSAGE FORM, QD
     Route: 065

REACTIONS (4)
  - Ureterolithiasis [Recovered/Resolved]
  - Flank pain [Recovered/Resolved]
  - Blood creatinine increased [Recovered/Resolved]
  - Hydronephrosis [Recovered/Resolved]

NARRATIVE: CASE EVENT DATE: 20241004
